FAERS Safety Report 18966788 (Version 1)
Quarter: 2021Q1

REPORT INFORMATION
  Report Type: Report from Study
  Country: NL (occurrence: NL)
  Receive Date: 20210304
  Receipt Date: 20210304
  Transmission Date: 20210420
  Serious: Yes (Other)
  Sender: FDA-Public Use
  Company Number: NL-SUN PHARMACEUTICAL INDUSTRIES LTD-2021R1-282847

PATIENT
  Sex: Male

DRUGS (7)
  1. LYRICA [Interacting]
     Active Substance: PREGABALIN
     Indication: NERVE INJURY
     Route: 065
  2. LYRICA [Interacting]
     Active Substance: PREGABALIN
     Indication: LIMB INJURY
  3. AMITRIPTYLINE [Interacting]
     Active Substance: AMITRIPTYLINE
     Indication: NERVE INJURY
     Route: 065
  4. PREDNISONE. [Suspect]
     Active Substance: PREDNISONE
     Indication: LIMB INJURY
  5. PREDNISONE. [Suspect]
     Active Substance: PREDNISONE
     Indication: NERVE INJURY
     Route: 065
  6. PARACETAMOL [Suspect]
     Active Substance: ACETAMINOPHEN
     Indication: LIMB INJURY
  7. PARACETAMOL [Suspect]
     Active Substance: ACETAMINOPHEN
     Indication: NERVE INJURY
     Route: 065

REACTIONS (8)
  - Eye irritation [Unknown]
  - Vision blurred [Unknown]
  - Drug interaction [Unknown]
  - Astigmatism [Not Recovered/Not Resolved]
  - Blindness transient [Not Recovered/Not Resolved]
  - Colour blindness [Not Recovered/Not Resolved]
  - Eye disorder [Unknown]
  - Visual impairment [Unknown]
